FAERS Safety Report 14465871 (Version 3)
Quarter: 2018Q2

REPORT INFORMATION
  Report Type: Spontaneous
  Country: GB (occurrence: GB)
  Receive Date: 20180131
  Receipt Date: 20180509
  Transmission Date: 20180711
  Serious: Yes (Death, Other)
  Sender: FDA-Public Use
  Company Number: GB-ROCHE-2058234

PATIENT
  Age: 23 Year
  Sex: Female

DRUGS (8)
  1. CODEINE [Suspect]
     Active Substance: CODEINE
     Indication: PRODUCT USED FOR UNKNOWN INDICATION
     Route: 065
  2. DIAZEPAM. [Suspect]
     Active Substance: DIAZEPAM
     Indication: PRODUCT USED FOR UNKNOWN INDICATION
     Dosage: UNK
     Route: 065
  3. PREGABALIN. [Interacting]
     Active Substance: PREGABALIN
     Indication: EPILEPSY
     Dosage: UNK
     Route: 048
  4. SERTRALINE [Interacting]
     Active Substance: SERTRALINE HYDROCHLORIDE
     Indication: PRODUCT USED FOR UNKNOWN INDICATION
     Dosage: UNK
     Route: 065
  5. TRAMADOL HYDROCHLORIDE. [Interacting]
     Active Substance: TRAMADOL HYDROCHLORIDE
     Indication: PRODUCT USED FOR UNKNOWN INDICATION
     Dosage: UNK
     Route: 065
  6. IMODIUM [Suspect]
     Active Substance: LOPERAMIDE HYDROCHLORIDE
     Indication: PRODUCT USED FOR UNKNOWN INDICATION
     Dosage: DOSAGE FORM: UNSPECIFIED
     Route: 065
  7. CANNABIS [Concomitant]
     Active Substance: CANNABIS SATIVA SUBSP. INDICA TOP
     Indication: PRODUCT USED FOR UNKNOWN INDICATION
     Dosage: UNK
     Route: 065
  8. PREGABALIN. [Interacting]
     Active Substance: PREGABALIN
     Indication: PAIN
     Dosage: UNK
     Route: 065

REACTIONS (33)
  - Depressed level of consciousness [Not Recovered/Not Resolved]
  - Feeling cold [Unknown]
  - Multiple sclerosis [Unknown]
  - Muscle tightness [Unknown]
  - Drug dependence [Unknown]
  - Contusion [Unknown]
  - Snoring [Unknown]
  - Alcohol abuse [Unknown]
  - Foaming at mouth [Unknown]
  - Myocardial infarction [Fatal]
  - Dysarthria [Unknown]
  - Cyanosis [Unknown]
  - Dyspnoea [Unknown]
  - Toxicity to various agents [Fatal]
  - Agitation [Unknown]
  - Balance disorder [Unknown]
  - Therapy non-responder [Unknown]
  - Loss of consciousness [Unknown]
  - Bacterial infection [Fatal]
  - Drug abuse [Fatal]
  - Accidental overdose [Unknown]
  - Aggression [Unknown]
  - Epilepsy [Unknown]
  - Feeling cold [Unknown]
  - Pneumonia [Fatal]
  - Anger [Unknown]
  - Overdose [Unknown]
  - Pneumonitis [Unknown]
  - Tooth disorder [Unknown]
  - Schizophrenia [Unknown]
  - Intentional self-injury [Unknown]
  - Drug interaction [Not Recovered/Not Resolved]
  - Nervous system disorder [Unknown]

NARRATIVE: CASE EVENT DATE: 201608
